FAERS Safety Report 7103674-X (Version None)
Quarter: 2010Q4

REPORT INFORMATION
  Report Type: 
  Country: None (occurrence: None)
  Receive Date: 20101115
  Receipt Date: 20091027
  Transmission Date: 20110411
  Serious: No
  Sender: FDA-Public Use
  Company Number: US-KINGPHARMUSA00001-K200901340

PATIENT
  Age: 71 Year
  Sex: Female
  Weight: 49.887 kg

DRUGS (4)
  1. LEVOXYL [Suspect]
     Indication: HYPOTHYROIDISM
     Dosage: 88 MCG, QD
     Route: 048
     Dates: start: 20090301
  2. ALPHAGAN [Concomitant]
     Indication: GLAUCOMA
     Dosage: UNK
     Route: 047
  3. TIMOLOL MALEATE [Concomitant]
     Indication: GLAUCOMA
     Dosage: UNK
  4. IMITREX [Concomitant]
     Indication: MIGRAINE
     Dosage: UNK, PRN

REACTIONS (1)
  - DYSURIA [None]
